FAERS Safety Report 12586223 (Version 1)
Quarter: 2016Q3

REPORT INFORMATION
  Report Type: Spontaneous
  Country: US (occurrence: None)
  Receive Date: 20160722
  Receipt Date: 20160722
  Transmission Date: 20161109
  Serious: Yes (Life-Threatening)
  Sender: FDA-Public Use
  Company Number: None

PATIENT
  Age: 85 Year
  Sex: Female
  Weight: 71.2 kg

DRUGS (2)
  1. LINAGLIPTIN [Suspect]
     Active Substance: LINAGLIPTIN
     Dates: start: 20160523, end: 20160630
  2. SITAGLIPTIN [Suspect]
     Active Substance: SITAGLIPTIN
     Indication: DIABETES MELLITUS
     Dates: start: 20151116, end: 20160418

REACTIONS (4)
  - Confusional state [None]
  - Pancreatic carcinoma [None]
  - Metastases to lung [None]
  - Cerebrovascular accident [None]

NARRATIVE: CASE EVENT DATE: 20160714
